FAERS Safety Report 10018803 (Version 1)
Quarter: 2014Q1

REPORT INFORMATION
  Report Type: Spontaneous
  Country: FR (occurrence: FR)
  Receive Date: 20140318
  Receipt Date: 20140318
  Transmission Date: 20141002
  Serious: Yes (Other)
  Sender: FDA-Public Use
  Company Number: FR-GLAXOSMITHKLINE-B0976137A

PATIENT
  Age: 41 Year
  Sex: Male

DRUGS (1)
  1. NIQUITIN MINI LOZENGES [Suspect]
     Indication: EX-TOBACCO USER
     Route: 002
     Dates: start: 20140101, end: 20140224

REACTIONS (3)
  - Abdominal pain [Not Recovered/Not Resolved]
  - Epistaxis [Not Recovered/Not Resolved]
  - Haemorrhage [Not Recovered/Not Resolved]
